FAERS Safety Report 9329827 (Version 1)
Quarter: 2013Q2

REPORT INFORMATION
  Report Type: Spontaneous
  Country: US (occurrence: US)
  Receive Date: 20130604
  Receipt Date: 20130604
  Transmission Date: 20140414
  Serious: No
  Sender: FDA-Public Use
  Company Number: US-SANOFI-AVENTIS-2013SA003455

PATIENT
  Age: 54 Year
  Sex: Female

DRUGS (3)
  1. LANTUS [Suspect]
  2. DEPOT-INSULIN [Suspect]
  3. INSULIN ASPART [Concomitant]

REACTIONS (3)
  - Blood glucose increased [Unknown]
  - Nasopharyngitis [Unknown]
  - Cough [Unknown]
